FAERS Safety Report 7357583-1 (Version None)
Quarter: 2011Q1

REPORT INFORMATION
  Report Type: 
  Country: None (occurrence: None)
  Receive Date: 20110317
  Receipt Date: 20110306
  Transmission Date: 20110831
  Serious: Yes (Death)
  Sender: FDA-Public Use
  Company Number: DE-CELGENEUS-062-20785-10122333

PATIENT
  Age: 67 Year
  Sex: Male
  Weight: 62 kg

DRUGS (9)
  1. IMMUNE GLOBULIN NOS [Concomitant]
     Indication: INFECTION PROPHYLAXIS
     Route: 051
  2. NOVAMINSULFON [Concomitant]
     Dosage: 160 DROPS
     Route: 048
  3. THALIDOMIDE [Suspect]
     Dosage: 100 MILLIGRAM
     Route: 048
     Dates: start: 20100222, end: 20101112
  4. PALLADONE [Concomitant]
     Route: 065
  5. PANTAZOL [Concomitant]
     Dosage: 10 UNKNOWN
     Route: 048
  6. THALIDOMIDE [Suspect]
     Indication: MULTIPLE MYELOMA
     Dosage: 50 MILLIGRAM
     Route: 048
     Dates: start: 20100215
  7. ZOLEDRONIC ACID [Concomitant]
     Route: 065
     Dates: start: 20090701
  8. CLEXANE [Concomitant]
     Indication: ANTICOAGULANT THERAPY
     Dosage: 60 UNKNOWN
     Route: 058
  9. PALLADONE [Concomitant]
     Dosage: 20 MILLIGRAM
     Route: 065

REACTIONS (1)
  - MULTIPLE MYELOMA [None]
